APPROVED DRUG PRODUCT: APREMILAST
Active Ingredient: APREMILAST
Strength: 10MG
Dosage Form/Route: TABLET;ORAL
Application: A211834 | Product #001
Applicant: TORRENT PHARMACEUTICALS LTD
Approved: Jun 20, 2025 | RLD: No | RS: No | Type: DISCN